FAERS Safety Report 20086875 (Version 1)
Quarter: 2021Q4

REPORT INFORMATION
  Report Type: Spontaneous
  Country: US (occurrence: US)
  Receive Date: 20211118
  Receipt Date: 20211118
  Transmission Date: 20220303
  Serious: Yes (Disabling, Other)
  Sender: FDA-Public Use
  Company Number: US-ORG100016242-2021000607

PATIENT
  Sex: Female

DRUGS (1)
  1. EXPAREL [Suspect]
     Active Substance: BUPIVACAINE
     Dosage: NOT PROVIDED
     Route: 050
     Dates: start: 201911

REACTIONS (7)
  - Phrenic nerve injury [Unknown]
  - Diaphragmatic injury [Unknown]
  - Lung disorder [Not Recovered/Not Resolved]
  - Diaphragmatic paralysis [Unknown]
  - Atelectasis [Unknown]
  - Pneumonia [Unknown]
  - Dyspnoea [Unknown]
